FAERS Safety Report 12488098 (Version 4)
Quarter: 2017Q1

REPORT INFORMATION
  Report Type: Spontaneous
  Country: US (occurrence: US)
  Receive Date: 20160622
  Receipt Date: 20170221
  Transmission Date: 20170428
  Serious: No
  Sender: FDA-Public Use
  Company Number: US-PFIZER INC-2016286386

PATIENT
  Age: 66 Year
  Sex: Female

DRUGS (5)
  1. IBRANCE [Suspect]
     Active Substance: PALBOCICLIB
     Indication: BREAST CANCER METASTATIC
     Dosage: 125 MG, DAILY [ONCE]
     Route: 048
     Dates: start: 20160513
  2. ZOLEDRONIC ACID [Concomitant]
     Active Substance: ZOLEDRONIC ACID
     Indication: BREAST CANCER METASTATIC
     Dosage: 4 MG (5ML)
  3. ZOLEDRONIC ACID [Concomitant]
     Active Substance: ZOLEDRONIC ACID
     Dosage: UNK, (EVERY 2 MONTHS INFUSIONS)
     Dates: start: 201204
  4. FASLODEX [Concomitant]
     Active Substance: FULVESTRANT
     Indication: BREAST CANCER METASTATIC
     Dosage: UNK (250MG/5ML PFS)
  5. FASLODEX [Concomitant]
     Active Substance: FULVESTRANT
     Dosage: UNK, MONTHLY
     Dates: start: 20160506

REACTIONS (11)
  - Joint stiffness [Not Recovered/Not Resolved]
  - Dry mouth [Not Recovered/Not Resolved]
  - Dizziness [Not Recovered/Not Resolved]
  - Alopecia [Not Recovered/Not Resolved]
  - White blood cell count decreased [Not Recovered/Not Resolved]
  - Stomatitis [Recovered/Resolved]
  - Fatigue [Not Recovered/Not Resolved]
  - Balance disorder [Not Recovered/Not Resolved]
  - Nasopharyngitis [Not Recovered/Not Resolved]
  - Oropharyngeal pain [Not Recovered/Not Resolved]
  - Rash [Recovered/Resolved]

NARRATIVE: CASE EVENT DATE: 201605
